FAERS Safety Report 20341173 (Version 1)
Quarter: 2022Q1

REPORT INFORMATION
  Report Type: Spontaneous
  Country: US (occurrence: US)
  Receive Date: 20220117
  Receipt Date: 20220117
  Transmission Date: 20220424
  Serious: No
  Sender: FDA-Public Use
  Company Number: US-SCIEGENP-2021SCSPO01053

PATIENT
  Age: 70 Year
  Sex: Male

DRUGS (2)
  1. GABAPENTIN [Suspect]
     Active Substance: GABAPENTIN
     Indication: Product used for unknown indication
     Dosage: AS NEEDED
  2. TYLENOL [Suspect]
     Active Substance: ACETAMINOPHEN
     Indication: Product used for unknown indication
     Dosage: TWO TYLENOL 500 MG TABLETS AS NEED
     Route: 065

REACTIONS (2)
  - Dry mouth [Unknown]
  - Somnolence [Unknown]
